FAERS Safety Report 9663795 (Version 2)
Quarter: 2014Q1

REPORT INFORMATION
  Report Type: Spontaneous
  Country: US (occurrence: US)
  Receive Date: 20131101
  Receipt Date: 20140325
  Transmission Date: 20141002
  Serious: Yes (Death)
  Sender: FDA-Public Use
  Company Number: US-NOVOPROD-391107

PATIENT
  Age: 45 Year
  Sex: Male
  Weight: 145.13 kg

DRUGS (1)
  1. VICTOZA [Suspect]
     Indication: TYPE 2 DIABETES MELLITUS
     Dosage: 18 MG, QD
     Route: 058
     Dates: start: 201110, end: 201211

REACTIONS (1)
  - Pancreatic carcinoma [Fatal]
